FAERS Safety Report 6351081-X (Version None)
Quarter: 2009Q3

REPORT INFORMATION
  Report Type: 
  Country: None (occurrence: None)
  Receive Date: 20090912
  Receipt Date: 20090622
  Transmission Date: 20100115
  Serious: No
  Sender: FDA-Public Use
  Company Number: US-ABBOTT-07P-163-0376068-00

PATIENT
  Sex: Female
  Weight: 65.83 kg

DRUGS (5)
  1. HUMIRA [Suspect]
     Indication: PSORIATIC ARTHROPATHY
     Route: 058
     Dates: start: 20070501, end: 20070601
  2. HUMIRA [Suspect]
     Route: 058
     Dates: start: 20070723
  3. CILEST [Concomitant]
     Indication: CONTRACEPTION
     Route: 048
  4. CLINDAMYCIN [Concomitant]
     Indication: ACNE
     Route: 048
  5. HYDROCODONE BITARTRATE [Concomitant]
     Indication: PAIN
     Route: 048

REACTIONS (3)
  - INCORRECT DOSE ADMINISTERED [None]
  - PNEUMONIA [None]
  - WRONG TECHNIQUE IN DRUG USAGE PROCESS [None]
